FAERS Safety Report 14223268 (Version 2)
Quarter: 2017Q4

REPORT INFORMATION
  Report Type: Spontaneous
  Country: US (occurrence: US)
  Receive Date: 20171124
  Receipt Date: 20171208
  Transmission Date: 20180321
  Serious: Yes (Other)
  Sender: FDA-Public Use
  Company Number: US-009507513-1711USA005969

PATIENT
  Age: 14 Year
  Sex: Female
  Weight: 89.34 kg

DRUGS (1)
  1. DULERA [Suspect]
     Active Substance: FORMOTEROL FUMARATE DIHYDRATE\MOMETASONE FUROATE
     Indication: ASTHMA
     Dosage: 1 PUFF (STRENGTH 100/5), TWICE A DAY
     Route: 055
     Dates: start: 20171113, end: 20171113

REACTIONS (2)
  - Type IV hypersensitivity reaction [Unknown]
  - Angioedema [Recovered/Resolved]

NARRATIVE: CASE EVENT DATE: 201711
